FAERS Safety Report 25940310 (Version 2)
Quarter: 2025Q4

REPORT INFORMATION
  Report Type: Spontaneous
  Country: GB (occurrence: GB)
  Receive Date: 20251020
  Receipt Date: 20251215
  Transmission Date: 20260117
  Serious: Yes (Hospitalization)
  Sender: MYLAN
  Company Number: GB-MYLANLABS-2025M1088977

PATIENT
  Sex: Male

DRUGS (1)
  1. CLOZARIL [Suspect]
     Active Substance: CLOZAPINE
     Indication: Schizophrenia
     Dosage: UNK
     Route: 061
     Dates: start: 20231218, end: 20251113

REACTIONS (2)
  - Hospitalisation [Unknown]
  - Blood creatine phosphokinase increased [Unknown]
